FAERS Safety Report 20899580 (Version 22)
Quarter: 2023Q2

REPORT INFORMATION
  Report Type: Spontaneous
  Country: CA (occurrence: CA)
  Receive Date: 20220601
  Receipt Date: 20230607
  Transmission Date: 20230722
  Serious: Yes (Other)
  Sender: FDA-Public Use
  Company Number: CA-CELLTRION INC.-2022CA008304

PATIENT

DRUGS (16)
  1. INFLECTRA [Suspect]
     Active Substance: INFLIXIMAB-DYYB
     Indication: Crohn^s disease
     Dosage: 900 MG, INDUCTION AT 0,2, 6 WEEK THEN EVERY 8 WEEKS
     Route: 042
     Dates: start: 20220507
  2. INFLECTRA [Suspect]
     Active Substance: INFLIXIMAB-DYYB
     Dosage: 900 MG, INDUCTION AT 0,2, 6 WEEK THEN EVERY 8 WEEKS
     Route: 042
     Dates: start: 20220521
  3. INFLECTRA [Suspect]
     Active Substance: INFLIXIMAB-DYYB
     Dosage: 900 MG, INDUCTION AT 0,2, 6 WEEK THEN EVERY 8 WEEKS
     Route: 042
     Dates: start: 20220611
  4. INFLECTRA [Suspect]
     Active Substance: INFLIXIMAB-DYYB
     Dosage: 900 MG, INDUCTION AT 0,2, 6 WEEK THEN EVERY 8 WEEKS
     Route: 042
     Dates: start: 20220806
  5. INFLECTRA [Suspect]
     Active Substance: INFLIXIMAB-DYYB
     Dosage: 900 MG, INDUCTION AT 0,2, 6 WEEK THEN EVERY 8 WEEKS
     Route: 042
     Dates: start: 20221001
  6. INFLECTRA [Suspect]
     Active Substance: INFLIXIMAB-DYYB
     Dosage: 10 MG/KG REINDUCTION Q 0,2, 6 WEEK THEN EVERY 8 WEEKS - NOT YET STARTED
     Route: 042
  7. ACETAMINOPHEN [Concomitant]
     Active Substance: ACETAMINOPHEN
     Indication: Premedication
     Dosage: 650 MG
     Route: 048
     Dates: start: 20220806, end: 20220806
  8. ACETAMINOPHEN [Concomitant]
     Active Substance: ACETAMINOPHEN
     Dosage: 650 MG
     Route: 048
     Dates: start: 20221001, end: 20221001
  9. AZITHROMYCIN [Concomitant]
     Active Substance: AZITHROMYCIN
     Dosage: 250 MG, 3X/DAY (2 TABS)
  10. BENADRYL [Concomitant]
     Active Substance: DIPHENHYDRAMINE HYDROCHLORIDE
     Indication: Premedication
     Dosage: 25 MG
     Route: 042
     Dates: start: 20220521, end: 20220521
  11. DIPHENHYDRAMINE [Concomitant]
     Active Substance: DIPHENHYDRAMINE
     Indication: Premedication
     Dosage: 25 MG
     Route: 042
     Dates: start: 20220806, end: 20220806
  12. DIPHENHYDRAMINE [Concomitant]
     Active Substance: DIPHENHYDRAMINE
     Dosage: 25 MG
     Route: 042
     Dates: start: 20221001, end: 20221001
  13. HYDROCORTISONE [Concomitant]
     Active Substance: HYDROCORTISONE
     Indication: Premedication
     Dosage: 100 MG
     Route: 042
     Dates: start: 20220521, end: 20220521
  14. HYDROCORTISONE [Concomitant]
     Active Substance: HYDROCORTISONE
     Dosage: 100 MG
     Route: 042
     Dates: start: 20220806, end: 20220806
  15. HYDROCORTISONE [Concomitant]
     Active Substance: HYDROCORTISONE
     Dosage: 100 MG
     Route: 042
     Dates: start: 20221001, end: 20221001
  16. TYLENOL [Concomitant]
     Active Substance: ACETAMINOPHEN
     Indication: Premedication
     Dosage: 650 MG
     Route: 048
     Dates: start: 20220521, end: 20220521

REACTIONS (26)
  - Haematochezia [Recovered/Resolved]
  - Immunodeficiency [Unknown]
  - Heart rate decreased [Not Recovered/Not Resolved]
  - Chronic obstructive pulmonary disease [Unknown]
  - Drug specific antibody [Unknown]
  - Cough [Not Recovered/Not Resolved]
  - Headache [Not Recovered/Not Resolved]
  - Dyspnoea [Recovering/Resolving]
  - Arthralgia [Not Recovered/Not Resolved]
  - Chest pain [Not Recovered/Not Resolved]
  - Blood pressure fluctuation [Not Recovered/Not Resolved]
  - Heart rate irregular [Not Recovered/Not Resolved]
  - Weight increased [Unknown]
  - Muscle spasms [Recovered/Resolved]
  - Faeces discoloured [Recovered/Resolved]
  - COVID-19 [Recovered/Resolved]
  - Fatigue [Not Recovered/Not Resolved]
  - Anxiety [Unknown]
  - Productive cough [Not Recovered/Not Resolved]
  - Nausea [Not Recovered/Not Resolved]
  - Malaise [Recovering/Resolving]
  - Hyperhidrosis [Unknown]
  - Respiratory tract congestion [Unknown]
  - Sputum increased [Unknown]
  - Lower respiratory tract infection [Unknown]
  - Off label use [Unknown]

NARRATIVE: CASE EVENT DATE: 20220101
